FAERS Safety Report 14561924 (Version 2)
Quarter: 2018Q2

REPORT INFORMATION
  Report Type: Spontaneous
  Country: US (occurrence: US)
  Receive Date: 20180222
  Receipt Date: 20180530
  Transmission Date: 20180711
  Serious: Yes (Other)
  Sender: FDA-Public Use
  Company Number: US-009507513-1802USA010123

PATIENT
  Age: 67 Year
  Sex: Male

DRUGS (2)
  1. JANUVIA [Suspect]
     Active Substance: SITAGLIPTIN PHOSPHATE
     Indication: DIABETES MELLITUS
     Dosage: 1 TABLET DAILY
     Route: 048
     Dates: start: 2016
  2. ZETIA [Concomitant]
     Active Substance: EZETIMIBE
     Dosage: UNK

REACTIONS (1)
  - Diabetes mellitus inadequate control [Recovering/Resolving]
